FAERS Safety Report 23482162 (Version 1)
Quarter: 2024Q1

REPORT INFORMATION
  Report Type: Spontaneous
  Country: CN (occurrence: None)
  Receive Date: 20240205
  Receipt Date: 20240205
  Transmission Date: 20240410
  Serious: Yes (Hospitalization)
  Sender: FDA-Public Use
  Company Number: CN-ROCHE-3498600

PATIENT
  Age: 49 Year
  Sex: Male
  Weight: 70 kg

DRUGS (2)
  1. GAZYVA [Suspect]
     Active Substance: OBINUTUZUMAB
     Indication: Follicular lymphoma
     Dosage: D1,  02/DEC/2023, HE RECEIVED THE 6TH CYCLE GB REGIMEN FOR 1-5 CYCLES
     Route: 042
  2. BENDAMUSTINE HYDROCHLORIDE [Suspect]
     Active Substance: BENDAMUSTINE HYDROCHLORIDE
     Indication: Follicular lymphoma
     Dosage: D1-2, ON 02/DEC/2023, HE RECEIVED THE 6TH CYCLE GB REGIMEN FOR 1-5 CYCLES
     Route: 041

REACTIONS (1)
  - Myelosuppression [Unknown]

NARRATIVE: CASE EVENT DATE: 20231201
